FAERS Safety Report 11529433 (Version 1)
Quarter: 2015Q3

REPORT INFORMATION
  Report Type: Spontaneous
  Country: US (occurrence: None)
  Receive Date: 20150918
  Receipt Date: 20150918
  Transmission Date: 20151125
  Serious: Yes (Other)
  Sender: FDA-Public Use
  Company Number: None

PATIENT
  Age: 54 Year
  Sex: Female
  Weight: 92.53 kg

DRUGS (10)
  1. VITAMIN D3 [Concomitant]
     Active Substance: CHOLECALCIFEROL
  2. HUMULIN NOS [Concomitant]
     Active Substance: INSULIN HUMAN
  3. SYNTHAROID [Concomitant]
  4. CLONODINE [Concomitant]
  5. MONOPRIL [Concomitant]
     Active Substance: FOSINOPRIL SODIUM
  6. WOMEN^S DAILY VITAMIN [Concomitant]
  7. LABETALOL 300MG TEVA [Suspect]
     Active Substance: LABETALOL HYDROCHLORIDE
     Indication: MALIGNANT HYPERTENSION
     Route: 048
     Dates: start: 20150805, end: 20150905
  8. AMLODIPINE [Concomitant]
     Active Substance: AMLODIPINE BESYLATE
  9. ALOPURINOL [Concomitant]
     Active Substance: ALLOPURINOL
  10. ASPIRIN. [Concomitant]
     Active Substance: ASPIRIN

REACTIONS (13)
  - Activities of daily living impaired [None]
  - Eye pain [None]
  - Feeling abnormal [None]
  - Dysphagia [None]
  - Heart rate abnormal [None]
  - Dry mouth [None]
  - Incorrect dose administered [None]
  - Visual impairment [None]
  - Hypersomnia [None]
  - Epistaxis [None]
  - Photophobia [None]
  - Wrong technique in product usage process [None]
  - Balance disorder [None]

NARRATIVE: CASE EVENT DATE: 20150805
